APPROVED DRUG PRODUCT: BELBUCA
Active Ingredient: BUPRENORPHINE HYDROCHLORIDE
Strength: EQ 0.3MG BASE
Dosage Form/Route: FILM;BUCCAL
Application: N207932 | Product #003
Applicant: BIODELIVERY SCIENCES INTERNATIONAL INC
Approved: Oct 23, 2015 | RLD: Yes | RS: No | Type: RX

PATENTS:
Patent 8147866 | Expires: Jul 23, 2027
Patent 9655843 | Expires: Jul 23, 2027
Patent 9901539 | Expires: Dec 21, 2032